FAERS Safety Report 7583152-4 (Version None)
Quarter: 2011Q2

REPORT INFORMATION
  Report Type: 
  Country: None (occurrence: None)
  Receive Date: 20110627
  Receipt Date: 20110627
  Transmission Date: 20111010
  Serious: Yes (Hospitalization)
  Sender: FDA-Public Use
  Company Number: None

PATIENT
  Sex: Female
  Weight: 81.1 kg

DRUGS (3)
  1. TAXOTERE [Suspect]
     Dosage: 799 MG
  2. CYCLOPHOSPHAMIDE [Suspect]
     Dosage: 3688 MG
  3. DOXORUBICIN HYDROCHLORIDE [Suspect]
     Dosage: 369 MG

REACTIONS (7)
  - PANCYTOPENIA [None]
  - LEUKOCYTOSIS [None]
  - HYPERSENSITIVITY [None]
  - LEUKOPENIA [None]
  - ATRIAL FIBRILLATION [None]
  - BLOOD CREATININE INCREASED [None]
  - MYELODYSPLASTIC SYNDROME [None]
